FAERS Safety Report 18860464 (Version 3)
Quarter: 2021Q1

REPORT INFORMATION
  Report Type: Report from Study
  Country: CN (occurrence: CN)
  Receive Date: 20210208
  Receipt Date: 20210304
  Transmission Date: 20210420
  Serious: Yes (Death)
  Sender: FDA-Public Use
  Company Number: CN-PFIZER INC-2021091303

PATIENT
  Age: 28 Month
  Sex: Male

DRUGS (3)
  1. VORICONAZOLE. [Suspect]
     Active Substance: VORICONAZOLE
     Indication: FUNGAL INFECTION
     Dosage: 10 MG/KG, 2X/DAY
     Route: 042
  2. VORICONAZOLE. [Suspect]
     Active Substance: VORICONAZOLE
     Indication: FUNGAL INFECTION
     Dosage: 11 MG/KG, 2X/DAY
     Route: 048
  3. ITRACONAZOLE. [Suspect]
     Active Substance: ITRACONAZOLE
     Indication: FUNGAL INFECTION
     Dosage: UNK

REACTIONS (1)
  - Therapy partial responder [Fatal]
